FAERS Safety Report 15312393 (Version 2)
Quarter: 2018Q4

REPORT INFORMATION
  Report Type: Spontaneous
  Country: US (occurrence: US)
  Receive Date: 20180823
  Receipt Date: 20181023
  Transmission Date: 20190204
  Serious: Yes (Other)
  Sender: FDA-Public Use
  Company Number: US-BAYER-2018-158566

PATIENT
  Age: 34 Year
  Sex: Female
  Weight: 61.22 kg

DRUGS (1)
  1. MIRENA [Suspect]
     Active Substance: LEVONORGESTREL
     Indication: CONTRACEPTION
     Dosage: 20 MCG/24HR, CONT
     Route: 015
     Dates: start: 20150630, end: 20180920

REACTIONS (3)
  - Device breakage [Recovered/Resolved with Sequelae]
  - Embedded device [Recovered/Resolved with Sequelae]
  - Complication of device removal [Recovered/Resolved with Sequelae]

NARRATIVE: CASE EVENT DATE: 20180821
